FAERS Safety Report 12484303 (Version 1)
Quarter: 2016Q2

REPORT INFORMATION
  Report Type: Spontaneous
  Country: RO (occurrence: RO)
  Receive Date: 20160621
  Receipt Date: 20160621
  Transmission Date: 20160815
  Serious: Yes (Other)
  Sender: FDA-Public Use
  Company Number: RO-PFIZER INC-2016302896

PATIENT
  Age: 68 Year
  Sex: Female

DRUGS (2)
  1. IBUPROFEN. [Suspect]
     Active Substance: IBUPROFEN
  2. FLUCONAZOLE. [Concomitant]
     Active Substance: FLUCONAZOLE

REACTIONS (5)
  - Mouth ulceration [Unknown]
  - Stevens-Johnson syndrome [Unknown]
  - Genital ulceration [Unknown]
  - Malaise [Unknown]
  - Mucosal pain [Unknown]
